FAERS Safety Report 15315797 (Version 1)
Quarter: 2018Q3

REPORT INFORMATION
  Report Type: Spontaneous
  Country: DE (occurrence: DE)
  Receive Date: 20180824
  Receipt Date: 20180824
  Transmission Date: 20181010
  Serious: Yes (Hospitalization)
  Sender: FDA-Public Use
  Company Number: PHHY2018DE080944

PATIENT
  Age: 44 Year
  Sex: Female
  Weight: 82 kg

DRUGS (9)
  1. IRON [Concomitant]
     Active Substance: IRON
     Indication: ANAEMIA PROPHYLAXIS
     Dosage: 75 MG, QD
     Route: 048
     Dates: start: 201604, end: 20160715
  2. GILENYA [Suspect]
     Active Substance: FINGOLIMOD HYDROCHLORIDE
     Indication: RELAPSING-REMITTING MULTIPLE SCLEROSIS
     Dosage: 0.5 MG, QD
     Route: 048
     Dates: start: 201211, end: 20151128
  3. ENOXAPARIN [Concomitant]
     Active Substance: ENOXAPARIN
     Indication: FACTOR V DEFICIENCY
     Dosage: 40 MG, QD
     Route: 048
     Dates: start: 201512, end: 20160901
  4. ACETYLSALICYLIC ACID [Concomitant]
     Active Substance: ASPIRIN
     Indication: PLATELET AGGREGATION INHIBITION
  5. FAMPRIDINE [Concomitant]
     Active Substance: DALFAMPRIDINE
     Indication: PROPHYLAXIS
     Dosage: 10 MG, BID
     Route: 048
     Dates: start: 201211, end: 20151128
  6. SIMVASTATIN. [Concomitant]
     Active Substance: SIMVASTATIN
     Indication: HYPERCHOLESTEROLAEMIA
     Dosage: 40 MG, QD
     Route: 048
     Dates: start: 201211, end: 20151128
  7. ACETYLSALICYLIC ACID [Concomitant]
     Active Substance: ASPIRIN
     Indication: FACTOR V DEFICIENCY
     Dosage: 100 MG, QD
     Route: 048
     Dates: start: 201211, end: 20151128
  8. FOLIC ACID. [Concomitant]
     Active Substance: FOLIC ACID
     Indication: PROPHYLAXIS
     Dosage: 400 UG, QD
     Route: 048
     Dates: start: 20151128, end: 20160715
  9. MECLIZINE [Concomitant]
     Active Substance: MECLIZINE HYDROCHLORIDE
     Indication: HYPEREMESIS GRAVIDARUM
     Dosage: 25 MG, PRN
     Route: 048
     Dates: start: 201512, end: 201602

REACTIONS (1)
  - Femur fracture [Unknown]

NARRATIVE: CASE EVENT DATE: 20170315
